FAERS Safety Report 5451022-3 (Version None)
Quarter: 2007Q3

REPORT INFORMATION
  Report Type: 
  Country: None (occurrence: None)
  Receive Date: 20070911
  Receipt Date: 20070829
  Transmission Date: 20080115
  Serious: Yes (Hospitalization, Other)
  Sender: FDA-Public Use
  Company Number: CHNY2007DE02961

PATIENT
  Age: 82 Year
  Sex: Male

DRUGS (6)
  1. ACETYLSALICYLIC ACID (NCH) (ACETYLSALICYLIC ACID) UNKNOWN [Suspect]
  2. CLOPIDOGREL [Suspect]
  3. ANGIOTENSIN CONVERTING ENZYME BLOCKERS (NO INGREDIENTS/SUBSTANCES) [Suspect]
  4. BETA BLOCKING AGENTS(NO INGREDIENTS/SUBSTANCES) [Suspect]
  5. HMG COA REDUCTASE INHIBITORS(NO INGREDIENTS/SUBSTANCES) [Suspect]
  6. STENT IMPLANTATION(NO INGREDIENTS/SUBSTANCES) [Suspect]

REACTIONS (5)
  - ANGINA PECTORIS [None]
  - CORONARY ARTERY DISEASE [None]
  - CORONARY ARTERY RESTENOSIS [None]
  - DISEASE PROGRESSION [None]
  - STENT OCCLUSION [None]
